FAERS Safety Report 10146108 (Version 2)
Quarter: 2014Q2

REPORT INFORMATION
  Report Type: Report from Study
  Country: DE (occurrence: DE)
  Receive Date: 20140501
  Receipt Date: 20140501
  Transmission Date: 20141212
  Serious: Yes (Hospitalization)
  Sender: FDA-Public Use
  Company Number: DE-ROCHE-1025062

PATIENT
  Age: 73 Year
  Sex: Female
  Weight: 66 kg

DRUGS (5)
  1. VEMURAFENIB [Suspect]
     Indication: MALIGNANT MELANOMA
     Dosage: RECENT DOSE ON 20 DEC 2011
     Route: 048
     Dates: start: 20111026
  2. ALFASON [Concomitant]
     Route: 065
     Dates: start: 20111029
  3. DICLOFENAC [Concomitant]
     Route: 065
     Dates: start: 20111206
  4. L-THYROXIN [Concomitant]
     Route: 065
     Dates: start: 200110
  5. CARVEDILOL [Concomitant]
     Route: 065
     Dates: start: 199005

REACTIONS (1)
  - Vulvitis [Recovered/Resolved]
